FAERS Safety Report 12720136 (Version 1)
Quarter: 2016Q3

REPORT INFORMATION
  Report Type: Spontaneous
  Country: US (occurrence: US)
  Receive Date: 20160907
  Receipt Date: 20160907
  Transmission Date: 20161109
  Serious: No
  Sender: FDA-Public Use
  Company Number: US-PFIZER INC-2016415785

PATIENT
  Age: 74 Year
  Sex: Female
  Weight: 54.43 kg

DRUGS (3)
  1. LYRICA [Suspect]
     Active Substance: PREGABALIN
     Indication: TREMOR
     Dosage: 50MG CAPSULE, 3 A DAY
  2. LYRICA [Suspect]
     Active Substance: PREGABALIN
     Indication: VOICE THERAPY
  3. TYLENOL PM [Suspect]
     Active Substance: ACETAMINOPHEN\DIPHENHYDRAMINE
     Indication: PAIN IN EXTREMITY

REACTIONS (1)
  - Insomnia [Unknown]
